FAERS Safety Report 16937349 (Version 1)
Quarter: 2019Q4

REPORT INFORMATION
  Report Type: Spontaneous
  Country: US (occurrence: US)
  Receive Date: 20191018
  Receipt Date: 20191018
  Transmission Date: 20200122
  Serious: No
  Sender: FDA-Public Use
  Company Number: US-ASTRAZENECA-2019SF34744

PATIENT
  Sex: Male
  Weight: 93 kg

DRUGS (4)
  1. FLOCONAZOLE [Concomitant]
  2. FARXIGA [Suspect]
     Active Substance: DAPAGLIFLOZIN PROPANEDIOL
     Indication: TYPE 2 DIABETES MELLITUS
     Route: 048
     Dates: start: 20190122, end: 20190616
  3. CLINDAMYCIN. [Concomitant]
     Active Substance: CLINDAMYCIN
  4. NAPROXEN. [Concomitant]
     Active Substance: NAPROXEN

REACTIONS (20)
  - Rash pruritic [Not Recovered/Not Resolved]
  - Heart rate decreased [Unknown]
  - Ear discomfort [Unknown]
  - Tongue coated [Not Recovered/Not Resolved]
  - Urine analysis abnormal [Not Recovered/Not Resolved]
  - Candida infection [Not Recovered/Not Resolved]
  - Swollen tongue [Not Recovered/Not Resolved]
  - Weight decreased [Unknown]
  - Glucose urine present [Unknown]
  - Anxiety [Recovering/Resolving]
  - Pollakiuria [Not Recovered/Not Resolved]
  - White blood cell disorder [Not Recovered/Not Resolved]
  - Blister [Not Recovered/Not Resolved]
  - Platelet count decreased [Not Recovered/Not Resolved]
  - Thirst [Unknown]
  - Penile erythema [Recovering/Resolving]
  - Ageusia [Not Recovered/Not Resolved]
  - Epistaxis [Unknown]
  - Blood creatine abnormal [Unknown]
  - Aphthous ulcer [Not Recovered/Not Resolved]

NARRATIVE: CASE EVENT DATE: 20190604
